FAERS Safety Report 6307384-8 (Version None)
Quarter: 2009Q3

REPORT INFORMATION
  Report Type: 
  Country: None (occurrence: None)
  Receive Date: 20090813
  Receipt Date: 20090807
  Transmission Date: 20100115
  Serious: Yes (Hospitalization)
  Sender: FDA-Public Use
  Company Number: FR-AVENTIS-200914774EU

PATIENT
  Age: 74 Year
  Sex: Male

DRUGS (3)
  1. NATRIX [Suspect]
     Route: 048
  2. MICARDIS [Concomitant]
  3. AROTINOLOL HYDROCHLORIDE [Concomitant]

REACTIONS (2)
  - MYELODYSPLASTIC SYNDROME [None]
  - PANCYTOPENIA [None]
